FAERS Safety Report 6939607-6 (Version None)
Quarter: 2010Q3

REPORT INFORMATION
  Report Type: 
  Country: None (occurrence: None)
  Receive Date: 20100820
  Receipt Date: 20100805
  Transmission Date: 20110219
  Serious: Yes (Death)
  Sender: FDA-Public Use
  Company Number: 2010002980

PATIENT
  Age: 61 Year
  Sex: Female
  Weight: 45 kg

DRUGS (23)
  1. ERLOTINIB HYDROCHLORIDE [Suspect]
     Indication: LUNG ADENOCARCINOMA
     Dosage: (150 MG,QD),ORAL
     Route: 048
     Dates: start: 20081110, end: 20090106
  2. SELBEX (TEPRENONE) [Concomitant]
  3. LOXONIN (LOXOPROFEN SODIUM) [Concomitant]
  4. DUROTEP [Concomitant]
  5. LAXOBERON (SODIUM PICOSULFATE) [Concomitant]
  6. LECICARBON (LECICARBON) [Concomitant]
  7. PURSENNIDE (SENNA LEAF) [Concomitant]
  8. OXINORM (ORGOTEIN) [Concomitant]
  9. PREDNONINE (PREDNISOLONE) [Concomitant]
  10. GLYCEROL 2.6% [Concomitant]
  11. GABAPENTIN [Concomitant]
  12. PRIMPERAN TAB [Concomitant]
  13. BETAMETHASONE [Concomitant]
  14. OXYCONTIN [Concomitant]
  15. ZANTAC 150 [Concomitant]
  16. VAGOSTIGMIN (NEOSTIGMINE BROMIDE) [Concomitant]
  17. ATROPINE SULFATE [Concomitant]
  18. METILON (METAMIZOLE SODIUM) [Concomitant]
  19. SOLU-CORTEF [Concomitant]
  20. MAGMITT (MAGNESIUM OXIDE) [Concomitant]
  21. VITAMEDIN [Concomitant]
  22. ZOMETA [Concomitant]
  23. VOLTAREN [Concomitant]

REACTIONS (3)
  - DISSEMINATED INTRAVASCULAR COAGULATION [None]
  - LUNG ADENOCARCINOMA [None]
  - MALIGNANT NEOPLASM PROGRESSION [None]
